FAERS Safety Report 7692823-0 (Version None)
Quarter: 2011Q3

REPORT INFORMATION
  Report Type: 
  Country: None (occurrence: None)
  Receive Date: 20110819
  Receipt Date: 20110808
  Transmission Date: 20111222
  Serious: Yes (Other)
  Sender: FDA-Public Use
  Company Number: US-ELI_LILLY_AND_COMPANY-US201108003251

PATIENT
  Age: 73 Year
  Sex: Female

DRUGS (16)
  1. HUMULIN N [Suspect]
     Dosage: 37 U, EACH EVENING
     Dates: start: 19640101
  2. HUMULIN N [Suspect]
     Dosage: 37 U, EACH EVENING
     Dates: start: 19640101
  3. ATENOLOL [Concomitant]
     Dosage: UNK
  4. PLAVIX [Concomitant]
     Dosage: UNK
  5. RAMIPRIL [Concomitant]
     Dosage: UNK
  6. HUMALOG [Suspect]
     Indication: DIABETES MELLITUS
     Dosage: UNK UNK, OTHER
     Dates: end: 20110701
  7. LIPITOR [Concomitant]
     Dosage: UNK
  8. VITAMIN D [Concomitant]
     Dosage: UNK
  9. HUMULIN N [Suspect]
     Dosage: 15 U, BID
     Dates: start: 20110807
  10. FUROSEMIDE [Concomitant]
     Dosage: UNK
  11. EVENING PRIMROSE OIL [Concomitant]
  12. SERTRALINE HYDROCHLORIDE [Concomitant]
     Dosage: UNK
  13. HUMULIN N [Suspect]
     Dosage: 28 U, EACH MORNING
     Dates: start: 19640101
  14. GABAPENTIN [Concomitant]
     Dosage: UNK
  15. HUMULIN N [Suspect]
     Indication: DIABETES MELLITUS
     Dosage: 28 U, EACH MORNING
  16. HUMALOG [Suspect]
     Dosage: UNK, OTHER
     Dates: start: 19640101, end: 20110701

REACTIONS (15)
  - HYPERHIDROSIS [None]
  - SCIATICA [None]
  - GAIT DISTURBANCE [None]
  - FALL [None]
  - MALAISE [None]
  - BLINDNESS TRANSIENT [None]
  - THERAPEUTIC RESPONSE INCREASED [None]
  - MYOCARDIAL INFARCTION [None]
  - BACK DISORDER [None]
  - TREMOR [None]
  - THINKING ABNORMAL [None]
  - BLOOD GLUCOSE DECREASED [None]
  - BLOOD GLUCOSE INCREASED [None]
  - SPINAL COLUMN STENOSIS [None]
  - ARTHRALGIA [None]
